FAERS Safety Report 5769440-2 (Version None)
Quarter: 2008Q2

REPORT INFORMATION
  Report Type: 
  Country: None (occurrence: None)
  Receive Date: 20080612
  Receipt Date: 20080401
  Transmission Date: 20081010
  Serious: No
  Sender: FDA-Public Use
  Company Number: US-ABBOTT-08P-163-0444787-00

PATIENT
  Sex: Female
  Weight: 113.5 kg

DRUGS (12)
  1. HUMIRA [Suspect]
     Indication: PSORIASIS
     Route: 058
     Dates: start: 20071201
  2. LEVOTHYROXINE SODIUM [Concomitant]
     Indication: HYPOTHYROIDISM
     Route: 048
  3. CALCITRIOL [Concomitant]
     Indication: MINERAL SUPPLEMENTATION
     Route: 048
  4. WARFARIN SODIUM [Concomitant]
     Indication: ANTICOAGULANT THERAPY
     Route: 048
  5. ESOMEPRAZOLE MAGNESIUM [Concomitant]
     Indication: GASTROOESOPHAGEAL REFLUX DISEASE
  6. INSULIN [Concomitant]
     Indication: DIABETES MELLITUS
     Dosage: 40 UNITS AM 10 UNITS PM
     Route: 058
  7. EPOETIN ALFA [Concomitant]
     Indication: ANAEMIA
     Route: 058
  8. RENAL TAB [Concomitant]
     Indication: VITAMIN SUPPLEMENTATION
  9. TORSEMIDE [Concomitant]
     Indication: DIURETIC THERAPY
  10. POTASSIUM CHLORIDE [Concomitant]
     Indication: MINERAL SUPPLEMENTATION
  11. TRIAMCINOLONE [Concomitant]
     Indication: PSORIASIS
     Dosage: 01%
     Route: 061
  12. FLOBETASOL [Concomitant]
     Indication: PSORIASIS
     Route: 061

REACTIONS (1)
  - PSORIASIS [None]
